FAERS Safety Report 8883889 (Version 2)
Quarter: 2013Q1

REPORT INFORMATION
  Report Type: Spontaneous
  Country: JP (occurrence: JP)
  Receive Date: 20121102
  Receipt Date: 20130104
  Transmission Date: 20140127
  Serious: Yes (Hospitalization)
  Sender: FDA-Public Use
  Company Number: JP-PFIZER INC-2012273120

PATIENT
  Age: 84 Year
  Sex: Male

DRUGS (3)
  1. SEIBULE [Suspect]
     Indication: DIABETES MELLITUS
     Dosage: 50 MG, 1X/DAY
     Route: 048
  2. PIOGLITAZONE HYDROCHLORIDE [Suspect]
     Indication: PRODUCT USED FOR UNKNOWN INDICATION
     Dosage: 15 MG, 1X/DAY
     Route: 048
  3. INSULIN [Suspect]
     Indication: DIABETES MELLITUS
     Dosage: 10 IU, 2X/DAY ((IN THE MORNING AND EVENING)/DAY)
     Route: 058

REACTIONS (4)
  - Cerebral infarction [Unknown]
  - Decreased activity [Unknown]
  - Decreased appetite [Recovering/Resolving]
  - Dehydration [Unknown]
